FAERS Safety Report 7409952-9 (Version None)
Quarter: 2011Q2

REPORT INFORMATION
  Report Type: 
  Country: None (occurrence: None)
  Receive Date: 20110412
  Receipt Date: 20110408
  Transmission Date: 20111010
  Serious: Yes (Other)
  Sender: FDA-Public Use
  Company Number: US-PFIZER INC-2011078269

PATIENT
  Sex: Male
  Weight: 86.168 kg

DRUGS (1)
  1. ADVIL LIQUI-GELS [Suspect]
     Indication: BACK PAIN
     Dosage: UNKNOWN, 2 TABLETS
     Route: 048
     Dates: start: 20110301, end: 20110407

REACTIONS (1)
  - RENAL PAIN [None]
